FAERS Safety Report 18242831 (Version 1)
Quarter: 2020Q3

REPORT INFORMATION
  Report Type: Spontaneous
  Country: US (occurrence: US)
  Receive Date: 20200908
  Receipt Date: 20200908
  Transmission Date: 20201103
  Serious: No
  Sender: FDA-Public Use
  Company Number: US-PFIZER INC-2020344945

PATIENT
  Age: 57 Year
  Sex: Female
  Weight: 102.99 kg

DRUGS (5)
  1. MULTIVITAMINS [VITAMINS NOS] [Concomitant]
     Active Substance: VITAMINS
     Dosage: UNK
  2. XELJANZ XR [Suspect]
     Active Substance: TOFACITINIB CITRATE
     Indication: RHEUMATOID ARTHRITIS
     Dosage: 11 MG, DAILY
     Route: 048
  3. BACLOFEN. [Concomitant]
     Active Substance: BACLOFEN
     Dosage: 10 MG
  4. TYLENOL EXTRA STRENGTH [Concomitant]
     Active Substance: ACETAMINOPHEN
     Dosage: UNK (TYLENOL EXTRA STRENGTH)
  5. CELEBREX [Concomitant]
     Active Substance: CELECOXIB
     Dosage: 200 MG

REACTIONS (5)
  - Vision blurred [Unknown]
  - Hypertension [Unknown]
  - Headache [Unknown]
  - Migraine with aura [Unknown]
  - Dry throat [Unknown]
